FAERS Safety Report 16471218 (Version 2)
Quarter: 2019Q3

REPORT INFORMATION
  Report Type: Spontaneous
  Country: FR (occurrence: FR)
  Receive Date: 20190624
  Receipt Date: 20190725
  Transmission Date: 20191004
  Serious: Yes (Hospitalization, Other)
  Sender: FDA-Public Use
  Company Number: FR-TAKEDA-2019TUS038673

PATIENT
  Age: 51 Year
  Sex: Female
  Weight: 45 kg

DRUGS (1)
  1. ENTYVIO [Suspect]
     Active Substance: VEDOLIZUMAB
     Indication: ENTEROCOLITIS HAEMORRHAGIC
     Dosage: 300 MILLIGRAM, Q2WEEKS
     Route: 042
     Dates: start: 201902, end: 20190404

REACTIONS (5)
  - Epistaxis [Recovering/Resolving]
  - Haematoma [Recovering/Resolving]
  - Rectal haemorrhage [Recovered/Resolved]
  - Acquired haemophilia [Recovering/Resolving]
  - Gingival bleeding [Recovering/Resolving]

NARRATIVE: CASE EVENT DATE: 20190523
